FAERS Safety Report 9812146 (Version 1)
Quarter: 2014Q1

REPORT INFORMATION
  Report Type: Spontaneous
  Country: US (occurrence: US)
  Receive Date: 20140111
  Receipt Date: 20140111
  Transmission Date: 20141002
  Serious: Yes (Other)
  Sender: FDA-Public Use
  Company Number: US-009507513-1401USA003623

PATIENT
  Age: 26 Year
  Sex: Male

DRUGS (3)
  1. FAMOTIDINE [Suspect]
     Indication: PIERRE ROBIN SYNDROME
     Dosage: 7.5 ML, TAKEN ONCE A DAY
     Route: 048
     Dates: start: 201310
  2. FAMOTIDINE [Suspect]
     Indication: GASTROOESOPHAGEAL REFLUX DISEASE
  3. FAMOTIDINE [Suspect]
     Indication: LARYNGOSPASM

REACTIONS (3)
  - Convulsion [Not Recovered/Not Resolved]
  - Laryngospasm [Not Recovered/Not Resolved]
  - Drug ineffective [Not Recovered/Not Resolved]
